FAERS Safety Report 10254876 (Version 1)
Quarter: 2014Q2

REPORT INFORMATION
  Report Type: Spontaneous
  Country: GB (occurrence: GB)
  Receive Date: 20140624
  Receipt Date: 20140624
  Transmission Date: 20141212
  Serious: Yes (Disabling, Other)
  Sender: FDA-Public Use
  Company Number: GB-MYLANLABS-2014S1013902

PATIENT
  Age: 57 Year
  Sex: Female
  Weight: 69.85 kg

DRUGS (8)
  1. ATORVASTATIN [Suspect]
     Indication: HYPERCHOLESTEROLAEMIA
     Route: 048
     Dates: start: 2011, end: 2014
  2. SOLPADOL [Concomitant]
     Dates: start: 2002, end: 2014
  3. AMLODIPINE [Concomitant]
     Dates: start: 2002, end: 2014
  4. BENDROFLUMETHIAZIDE [Concomitant]
     Dates: start: 2002, end: 2014
  5. OMEPRAZOLE [Concomitant]
     Dates: start: 2002, end: 2014
  6. CITALOPRAM [Concomitant]
     Dates: start: 2002, end: 2014
  7. CENTRUM [Concomitant]
  8. FISH OIL [Concomitant]

REACTIONS (7)
  - Myalgia [Not Recovered/Not Resolved]
  - Muscle spasms [Not Recovered/Not Resolved]
  - Muscular weakness [Not Recovered/Not Resolved]
  - Back pain [Not Recovered/Not Resolved]
  - Musculoskeletal stiffness [Not Recovered/Not Resolved]
  - Pain in extremity [Not Recovered/Not Resolved]
  - Musculoskeletal pain [Not Recovered/Not Resolved]
